FAERS Safety Report 4985474-X (Version None)
Quarter: 2006Q2

REPORT INFORMATION
  Report Type: 
  Country: None (occurrence: None)
  Receive Date: 20060428
  Receipt Date: 20050330
  Transmission Date: 20061013
  Serious: No
  Sender: FDA-Public Use
  Company Number: 2005-02-0525

PATIENT
  Age: 51 Year
  Sex: Female

DRUGS (6)
  1. FLOVENT [Suspect]
     Indication: DRUG USE FOR UNKNOWN INDICATION
     Route: 055
  2. ASMANEX [Suspect]
     Indication: ASTHMA
     Dosage: 200MCG TWICE PER DAY
     Route: 055
     Dates: start: 20050204, end: 20050208
  3. RANITIDINE [Concomitant]
     Dosage: 150MG TWICE PER DAY
  4. AMITRIPTYLINE HCL [Concomitant]
  5. PARACETAMOL [Concomitant]
  6. DOXAZOSIN [Concomitant]

REACTIONS (4)
  - HYPOAESTHESIA ORAL [None]
  - MOUTH ULCERATION [None]
  - ORAL DISCOMFORT [None]
  - PRURITUS [None]
